FAERS Safety Report 20651438 (Version 2)
Quarter: 2022Q2

REPORT INFORMATION
  Report Type: Report from Study
  Country: CA (occurrence: CA)
  Receive Date: 20220330
  Receipt Date: 20220411
  Transmission Date: 20220720
  Serious: Yes (Other)
  Sender: FDA-Public Use
  Company Number: CA-BEH-2022143363

PATIENT
  Age: 64 Year
  Sex: Male
  Weight: 119.73 kg

DRUGS (2)
  1. HIZENTRA [Suspect]
     Active Substance: HUMAN IMMUNOGLOBULIN G
     Indication: Chronic inflammatory demyelinating polyradiculoneuropathy
     Dosage: 24 GRAM, BIW
     Route: 065
     Dates: start: 20210324
  2. HIZENTRA [Suspect]
     Active Substance: HUMAN IMMUNOGLOBULIN G
     Dosage: 24 GRAM, BIW (PFS)
     Route: 065
     Dates: start: 20210324

REACTIONS (7)
  - Mental impairment [Unknown]
  - Weight increased [Unknown]
  - Poor quality sleep [Unknown]
  - Fatigue [Unknown]
  - Feeling abnormal [Unknown]
  - Abdominal pain [Unknown]
  - Arthralgia [Unknown]

NARRATIVE: CASE EVENT DATE: 20220321
